FAERS Safety Report 23863105 (Version 2)
Quarter: 2024Q2

REPORT INFORMATION
  Report Type: Spontaneous
  Country: US (occurrence: US)
  Receive Date: 20240516
  Receipt Date: 20240523
  Transmission Date: 20240715
  Serious: No
  Sender: FDA-Public Use
  Company Number: US-PFIZER INC-PV202400027528

PATIENT
  Age: 79 Year
  Sex: Male

DRUGS (1)
  1. INLYTA [Suspect]
     Active Substance: AXITINIB
     Indication: Mental status changes
     Dosage: 5 MG, 2X/DAY WITH OR WITHOUT FOOD.
     Route: 048

REACTIONS (3)
  - Hypoacusis [Unknown]
  - Off label use [Unknown]
  - Off label use [Unknown]
